FAERS Safety Report 9709978 (Version 2)
Quarter: 2013Q4

REPORT INFORMATION
  Report Type: Report from Study
  Country: CA (occurrence: CA)
  Receive Date: 20131126
  Receipt Date: 20131210
  Transmission Date: 20140711
  Serious: Yes (Hospitalization)
  Sender: FDA-Public Use
  Company Number: CA-ROCHE-1305160

PATIENT
  Age: 51 Year
  Sex: Male
  Weight: 80 kg

DRUGS (4)
  1. AVASTIN [Suspect]
     Indication: GLIOBLASTOMA
     Route: 042
     Dates: start: 20130621, end: 20131025
  2. DECADRON [Concomitant]
     Dosage: THEN OD FOR 24 HRS, THEN HALF TABLET FOR 72 HRS
     Route: 065
  3. KEPPRA [Concomitant]
     Route: 065
  4. PANTOLOC [Concomitant]
     Route: 065

REACTIONS (4)
  - Neoplasm malignant [Not Recovered/Not Resolved]
  - Vomiting [Unknown]
  - Disease progression [Unknown]
  - Malaise [Unknown]
